FAERS Safety Report 5115882-8 (Version None)
Quarter: 2006Q3

REPORT INFORMATION
  Report Type: 
  Country: None (occurrence: None)
  Receive Date: 20060927
  Receipt Date: 20060916
  Transmission Date: 20061208
  Serious: Yes (Hospitalization)
  Sender: FDA-Public Use
  Company Number: FR-BRISTOL-MYERS SQUIBB COMPANY-13515416

PATIENT
  Age: 9 Year
  Sex: Male
  Weight: 22 kg

DRUGS (1)
  1. ORENCIA [Suspect]
     Indication: ERYTHRODERMIC PSORIASIS
     Route: 042
     Dates: start: 20060529

REACTIONS (2)
  - HEADACHE [None]
  - PYREXIA [None]
